FAERS Safety Report 20318677 (Version 2)
Quarter: 2022Q1

REPORT INFORMATION
  Report Type: Report from Study
  Country: KR (occurrence: KR)
  Receive Date: 20220110
  Receipt Date: 20220114
  Transmission Date: 20220423
  Serious: Yes (Death, Other)
  Sender: FDA-Public Use
  Company Number: KR-NOVARTISPH-NVSC2021KR302010

PATIENT
  Sex: Male
  Weight: 60.2 kg

DRUGS (4)
  1. RYDAPT [Suspect]
     Active Substance: MIDOSTAURIN
     Indication: Acute myeloid leukaemia
     Dosage: 50 MG
     Route: 048
     Dates: start: 20210424, end: 20210516
  2. RYDAPT [Suspect]
     Active Substance: MIDOSTAURIN
     Dosage: 50 MG, BID
     Route: 048
     Dates: start: 20210513, end: 20210611
  3. POSPENEM [Concomitant]
     Indication: Anal abscess
     Dosage: 1 G
     Route: 065
     Dates: start: 20210513, end: 20210514
  4. FOLIC ACID [Concomitant]
     Active Substance: FOLIC ACID
     Indication: Myelodysplastic syndrome
     Dosage: 1 MG (SINIL)
     Route: 065
     Dates: start: 20200401, end: 20210521

REACTIONS (7)
  - Pneumonia [Fatal]
  - Pleural effusion [Fatal]
  - Anal abscess [Not Recovered/Not Resolved]
  - Neutrophil count decreased [Unknown]
  - C-reactive protein increased [Unknown]
  - Platelet count decreased [Unknown]
  - Haemoglobin decreased [Unknown]

NARRATIVE: CASE EVENT DATE: 20210424
